FAERS Safety Report 5060183-X (Version None)
Quarter: 2006Q3

REPORT INFORMATION
  Report Type: 
  Country: None (occurrence: None)
  Receive Date: 20060719
  Receipt Date: 20060707
  Transmission Date: 20061208
  Serious: Yes (Hospitalization, Other)
  Sender: FDA-Public Use
  Company Number: 2006-07-0317

PATIENT
  Age: 70 Year
  Sex: Male
  Weight: 52 kg

DRUGS (7)
  1. PEG-INTRON [Suspect]
     Indication: HEPATITIS C
     Dosage: 80 MCG QW SUBCUTANEOUS
     Route: 058
     Dates: start: 20060120
  2. REBETOL [Suspect]
     Indication: HEPATITIS C
     Dosage: 600 MG ORAL
     Route: 048
     Dates: start: 20060101
  3. ISCOTIN [Concomitant]
  4. RIFAMPICIN [Concomitant]
  5. ESANBUTOL [Concomitant]
  6. PYRIDOXAL PHOSPHATE [Concomitant]
  7. TAMSULOSIN HCL [Concomitant]

REACTIONS (4)
  - DYSPNOEA [None]
  - ELECTROCARDIOGRAM ST SEGMENT ELEVATION [None]
  - SYNCOPE [None]
  - TUBERCULOSIS [None]
